FAERS Safety Report 14481441 (Version 1)
Quarter: 2018Q1

REPORT INFORMATION
  Report Type: Spontaneous
  Country: JO (occurrence: JO)
  Receive Date: 20180202
  Receipt Date: 20180202
  Transmission Date: 20180509
  Serious: Yes (Hospitalization)
  Sender: FDA-Public Use
  Company Number: JO-NOVOPROD-583531

PATIENT
  Sex: Female

DRUGS (5)
  1. NOVORAPID [Suspect]
     Active Substance: INSULIN ASPART
     Indication: TYPE 2 DIABETES MELLITUS
     Dosage: (3 TIMES DAILY )UNK
     Route: 058
     Dates: start: 20180120
  2. NOVORAPID [Suspect]
     Active Substance: INSULIN ASPART
     Dosage: UNK
     Route: 058
     Dates: start: 20180123, end: 20180124
  3. LEVEMIR [Suspect]
     Active Substance: INSULIN DETEMIR
     Indication: TYPE 2 DIABETES MELLITUS
     Dosage: UNK (TWICE DAILY )
     Route: 058
     Dates: start: 20180120, end: 20180122
  4. NOVORAPID [Suspect]
     Active Substance: INSULIN ASPART
     Dosage: LOWERED DOSE
     Route: 058
     Dates: start: 20180121, end: 20180122
  5. LEVEMIR [Suspect]
     Active Substance: INSULIN DETEMIR
     Dosage: UNK
     Dates: start: 20180123, end: 20180124

REACTIONS (5)
  - Dyspnoea [Recovered/Resolved]
  - Hypoglycaemia [Unknown]
  - Pruritus [Recovered/Resolved]
  - Exposure during pregnancy [Unknown]
  - Lip swelling [Recovered/Resolved]

NARRATIVE: CASE EVENT DATE: 20180120
